FAERS Safety Report 5506698-9 (Version None)
Quarter: 2007Q4

REPORT INFORMATION
  Report Type: 
  Country: None (occurrence: None)
  Receive Date: 20071105
  Receipt Date: 20071102
  Transmission Date: 20080405
  Serious: Yes (Death, Hospitalization)
  Sender: FDA-Public Use
  Company Number: US-BRISTOL-MYERS SQUIBB COMPANY-13883848

PATIENT
  Age: 35 Year
  Sex: Male

DRUGS (5)
  1. EMSAM [Suspect]
     Indication: DEPRESSION
     Route: 062
     Dates: start: 20070726, end: 20070816
  2. EMSAM [Suspect]
     Indication: BIPOLAR II DISORDER
     Route: 062
     Dates: start: 20070726, end: 20070816
  3. ABILIFY [Suspect]
     Dates: start: 20070411
  4. LITHOBID [Suspect]
     Dosage: 1 DOSAGE FORM = 0.9 (NO UNITS)
     Dates: start: 20070411
  5. LUNESTA [Concomitant]

REACTIONS (7)
  - CARDIAC FAILURE [None]
  - CERVICAL VERTEBRAL FRACTURE [None]
  - CONVULSION [None]
  - FALL [None]
  - HEAD INJURY [None]
  - SPINAL CORD COMPRESSION [None]
  - SUICIDAL IDEATION [None]
